FAERS Safety Report 7545297-4 (Version None)
Quarter: 2011Q2

REPORT INFORMATION
  Report Type: 
  Country: None (occurrence: None)
  Receive Date: 20110607
  Receipt Date: 20110523
  Transmission Date: 20111010
  Serious: Yes (Hospitalization)
  Sender: FDA-Public Use
  Company Number: 2011MA006330

PATIENT
  Age: 23 Year
  Sex: Female

DRUGS (1)
  1. SULFATRIM PEDIATRIC [Suspect]
     Indication: INFECTED BITES

REACTIONS (15)
  - HYPOTENSION [None]
  - ASPARTATE AMINOTRANSFERASE INCREASED [None]
  - PROTEIN URINE PRESENT [None]
  - UROBILINOGEN URINE INCREASED [None]
  - DRUG HYPERSENSITIVITY [None]
  - TACHYCARDIA [None]
  - WHITE BLOOD CELL COUNT DECREASED [None]
  - ANISOCYTOSIS [None]
  - POIKILOCYTOSIS [None]
  - BLOOD UREA DECREASED [None]
  - CARBON DIOXIDE DECREASED [None]
  - STEVENS-JOHNSON SYNDROME [None]
  - BLOOD GLUCOSE DECREASED [None]
  - STAPHYLOCOCCAL INFECTION [None]
  - BLOOD CREATININE DECREASED [None]
